FAERS Safety Report 9548746 (Version 1)
Quarter: 2013Q3

REPORT INFORMATION
  Report Type: Spontaneous
  Country: US (occurrence: None)
  Receive Date: 20130923
  Receipt Date: 20130923
  Transmission Date: 20140515
  Serious: No
  Sender: FDA-Public Use
  Company Number: None

PATIENT
  Age: 3 Year
  Sex: Female
  Weight: 18.14 kg

DRUGS (1)
  1. NASAL SPRAY NASONEX 50MCG [Suspect]
     Indication: MULTIPLE ALLERGIES
     Dosage: ONCE DAILY

REACTIONS (1)
  - Epistaxis [None]
